FAERS Safety Report 11762154 (Version 1)
Quarter: 2015Q4

REPORT INFORMATION
  Report Type: Spontaneous
  Country: US (occurrence: US)
  Receive Date: 20151120
  Receipt Date: 20151120
  Transmission Date: 20160304
  Serious: No
  Sender: FDA-Public Use
  Company Number: US-ELI_LILLY_AND_COMPANY-US201211008958

PATIENT
  Sex: Female
  Weight: 50.79 kg

DRUGS (4)
  1. VANCOMYCIN [Concomitant]
     Active Substance: VANCOMYCIN
  2. FORTEO [Suspect]
     Active Substance: TERIPARATIDE
     Indication: OSTEOPOROSIS
     Dosage: 20 UG, QD
     Dates: start: 201203
  3. PRIMIDONE. [Concomitant]
     Active Substance: PRIMIDONE
  4. OXACILLIN [Concomitant]
     Active Substance: OXACILLIN SODIUM

REACTIONS (9)
  - Peroneal nerve palsy [Unknown]
  - Fatigue [Not Recovered/Not Resolved]
  - Night sweats [Recovered/Resolved]
  - Intentional product misuse [Unknown]
  - Surgery [Unknown]
  - Weight decreased [Recovering/Resolving]
  - Essential tremor [Not Recovered/Not Resolved]
  - Nerve injury [Unknown]
  - Neck pain [Not Recovered/Not Resolved]
